FAERS Safety Report 21248536 (Version 1)
Quarter: 2022Q3

REPORT INFORMATION
  Report Type: Spontaneous
  Country: US (occurrence: None)
  Receive Date: 20220823
  Receipt Date: 20220823
  Transmission Date: 20221027
  Serious: Yes (Other)
  Sender: FDA-Public Use
  Company Number: None

PATIENT
  Age: 38 Year
  Sex: Female
  Weight: 58.5 kg

DRUGS (1)
  1. CVS GENTLE LAXATIVE [Suspect]
     Active Substance: BISACODYL
     Indication: Laxative supportive care
     Dosage: OTHER QUANTITY : 25 TABLET(S);?FREQUENCY : EVERY 8 HOURS;?
     Route: 048
     Dates: start: 20220822, end: 20220822

REACTIONS (3)
  - Vomiting [None]
  - Migraine [None]
  - Pyrexia [None]

NARRATIVE: CASE EVENT DATE: 20220822
